FAERS Safety Report 7734887-1 (Version None)
Quarter: 2011Q4

REPORT INFORMATION
  Report Type: 
  Country: None (occurrence: None)
  Receive Date: 20110907
  Receipt Date: 20110824
  Transmission Date: 20120403
  Serious: Yes (Hospitalization, Other)
  Sender: FDA-Public Use
  Company Number: PHHY2011FR76220

PATIENT
  Sex: Male

DRUGS (9)
  1. LEXOMIL [Concomitant]
     Dosage: 3 MG, QD
     Route: 048
  2. TEMERITDUO [Interacting]
     Indication: HYPERTENSION
     Dosage: 1 DF, QD, 5/12.5 MG
     Route: 048
     Dates: end: 20110726
  3. LANSOPRAZOLE [Concomitant]
     Indication: GASTROOESOPHAGEAL REFLUX DISEASE
     Dosage: 15 MG, QD
     Route: 048
  4. FUROSEMIDE [Interacting]
     Indication: HYPERTENSION
     Dosage: 80 MG, DAILY
     Route: 048
     Dates: end: 20110726
  5. PRAVIGARD PAC (COPACKAGED) [Interacting]
     Indication: HYPERCHOLESTEROLAEMIA
     Dosage: 1 DF, QD
     Route: 048
     Dates: end: 20110726
  6. ALLOPURINOL [Concomitant]
     Dosage: 200 MG, QD
     Route: 048
     Dates: end: 20110726
  7. MOVIPREP [Concomitant]
     Dosage: 1 DF, QD
     Route: 048
     Dates: end: 20110726
  8. VALSARTAN [Suspect]
     Indication: HYPERTENSION
     Dosage: UNK UKN, UNK
     Route: 048
     Dates: end: 20110726
  9. PLAVIX [Concomitant]
     Dosage: 75 MG, QD
     Route: 048

REACTIONS (10)
  - GENERAL PHYSICAL HEALTH DETERIORATION [None]
  - CONGENITAL CYSTIC KIDNEY DISEASE [None]
  - BLOOD UREA INCREASED [None]
  - RENAL FAILURE ACUTE [None]
  - DRUG INTERACTION [None]
  - ANURIA [None]
  - PSYCHOMOTOR SKILLS IMPAIRED [None]
  - DEHYDRATION [None]
  - COMA SCALE ABNORMAL [None]
  - HYPOTENSION [None]
